FAERS Safety Report 21846449 (Version 2)
Quarter: 2024Q1

REPORT INFORMATION
  Report Type: Spontaneous
  Country: US (occurrence: US)
  Receive Date: 20230111
  Receipt Date: 20240120
  Transmission Date: 20240410
  Serious: No
  Sender: FDA-Public Use
  Company Number: US-AUROBINDO-AUR-APL-2022-049786

PATIENT
  Age: 22 Year
  Sex: Female

DRUGS (2)
  1. ECONTRA ONE-STEP [Suspect]
     Active Substance: LEVONORGESTREL
     Indication: Post coital contraception
     Dosage: UNK
     Route: 065
  2. ECONTRA ONE-STEP [Suspect]
     Active Substance: LEVONORGESTREL
     Dosage: UNK
     Route: 065

REACTIONS (1)
  - Expired product administered [Unknown]
